APPROVED DRUG PRODUCT: NADOLOL
Active Ingredient: NADOLOL
Strength: 80MG
Dosage Form/Route: TABLET;ORAL
Application: A201893 | Product #002 | TE Code: AB
Applicant: AUROBINDO PHARMA LTD
Approved: Sep 16, 2015 | RLD: No | RS: No | Type: RX